FAERS Safety Report 24010228 (Version 3)
Quarter: 2025Q4

REPORT INFORMATION
  Report Type: Report from Study
  Country: ZA (occurrence: ZA)
  Receive Date: 20240625
  Receipt Date: 20251204
  Transmission Date: 20260118
  Serious: Yes (Other)
  Sender: ROCHE
  Company Number: ZA-ROCHE-10000002871

PATIENT
  Sex: Female

DRUGS (2)
  1. OCREVUS [Suspect]
     Active Substance: OCRELIZUMAB
     Indication: Relapsing multiple sclerosis
     Dosage: THEREAFTER 600MG EVERY 6 MONTHS
     Route: 042
     Dates: start: 20221118
  2. OCREVUS [Suspect]
     Active Substance: OCRELIZUMAB
     Route: 042

REACTIONS (8)
  - Malaise [Unknown]
  - Influenza [Unknown]
  - Cognitive disorder [Unknown]
  - Muscular weakness [Unknown]
  - Bladder dysfunction [Unknown]
  - Muscle spasticity [Unknown]
  - Urinary retention [Unknown]
  - Magnetic resonance imaging spinal abnormal [Unknown]
